FAERS Safety Report 8986841 (Version 4)
Quarter: 2014Q2

REPORT INFORMATION
  Report Type: Report from Study
  Country: US (occurrence: US)
  Receive Date: 20121227
  Receipt Date: 20140605
  Transmission Date: 20141212
  Serious: Yes (Hospitalization)
  Sender: FDA-Public Use
  Company Number: US-BIOGENIDEC-2012BI062095

PATIENT
  Age: 57 Year
  Sex: Female

DRUGS (3)
  1. AVONEX [Suspect]
     Indication: MULTIPLE SCLEROSIS
     Route: 030
     Dates: start: 20020104, end: 20111231
  2. AVONEX [Suspect]
     Indication: MULTIPLE SCLEROSIS
     Route: 030
  3. AVONEX [Suspect]
     Indication: MULTIPLE SCLEROSIS
     Route: 030
     Dates: start: 20130202

REACTIONS (16)
  - Cerebrovascular accident [Recovered/Resolved]
  - Transient ischaemic attack [Recovered/Resolved]
  - Convulsion [Unknown]
  - Fall [Recovered/Resolved]
  - Mobility decreased [Unknown]
  - Allergy to metals [Unknown]
  - Musculoskeletal disorder [Recovered/Resolved]
  - Influenza [Not Recovered/Not Resolved]
  - Cough [Not Recovered/Not Resolved]
  - Aphonia [Recovered/Resolved]
  - Productive cough [Not Recovered/Not Resolved]
  - Drug dose omission [Not Recovered/Not Resolved]
  - Anxiety [Unknown]
  - Headache [Recovered/Resolved]
  - Feeling abnormal [Unknown]
  - Pain in extremity [Not Recovered/Not Resolved]
